FAERS Safety Report 25493863 (Version 1)
Quarter: 2025Q2

REPORT INFORMATION
  Report Type: Spontaneous
  Country: US (occurrence: None)
  Receive Date: 20250627
  Receipt Date: 20250627
  Transmission Date: 20250716
  Serious: Yes (Disabling)
  Sender: FDA-CTU
  Company Number: None

PATIENT
  Sex: Female

DRUGS (1)
  1. GADOLINIUM [Suspect]
     Active Substance: GADOLINIUM
     Indication: Magnetic resonance imaging
     Dates: start: 20240802

REACTIONS (24)
  - Skin reaction [None]
  - Swelling of eyelid [None]
  - Skin hyperpigmentation [None]
  - Burning sensation [None]
  - Skin disorder [None]
  - Temperature intolerance [None]
  - Photosensitivity reaction [None]
  - Injection site pain [None]
  - Sensory disturbance [None]
  - Injection site joint pain [None]
  - Arthralgia [None]
  - Arthralgia [None]
  - Toothache [None]
  - Muscle twitching [None]
  - Muscle spasms [None]
  - Muscle atrophy [None]
  - Muscular weakness [None]
  - Brain fog [None]
  - Tinnitus [None]
  - Paraesthesia [None]
  - Lacrimation decreased [None]
  - Ocular discomfort [None]
  - Dysgeusia [None]
  - Contrast media reaction [None]

NARRATIVE: CASE EVENT DATE: 20240802
